FAERS Safety Report 8811500 (Version 1)
Quarter: 2012Q4

REPORT INFORMATION
  Report Type: Spontaneous
  Country: US (occurrence: None)
  Receive Date: 20120924
  Receipt Date: 20120924
  Transmission Date: 20130627
  Serious: Yes (Disabling, Other)
  Sender: FDA-Public Use
  Company Number: AUR-APL-2012-03941

PATIENT
  Age: 61 Year
  Sex: Male
  Weight: 65 kg

DRUGS (2)
  1. TAMSULOSIN [Suspect]
     Indication: BENIGN PROSTATIC HYPERPLASIA
     Route: 048
  2. FINASTERIDE (FINASTERIDE) [Suspect]
     Indication: DRUG USE FOR UNKNOWN INDICATION
     Dosage: (3 Dosage forms)

REACTIONS (13)
  - Fracture of penis [None]
  - Treatment noncompliance [None]
  - Erectile dysfunction [None]
  - Breast swelling [None]
  - Nipple pain [None]
  - Nipple disorder [None]
  - Pruritus [None]
  - Fear [None]
  - Epistaxis [None]
  - Sneezing [None]
  - Nasal congestion [None]
  - Vasomotor rhinitis [None]
  - Condition aggravated [None]
